FAERS Safety Report 5367901-1 (Version None)
Quarter: 2007Q2

REPORT INFORMATION
  Report Type: 
  Country: None (occurrence: None)
  Receive Date: 20070622
  Receipt Date: 20070613
  Transmission Date: 20071010
  Serious: Yes (Hospitalization)
  Sender: FDA-Public Use
  Company Number: JP-BOEHRINGER INGELHEIM PHARMACEUTICALS, INC.-2007-BP-07572NB

PATIENT
  Sex: Female
  Weight: 70 kg

DRUGS (6)
  1. MICARDIS [Suspect]
     Indication: HYPERTENSION
     Route: 048
     Dates: start: 20060523, end: 20061126
  2. LASIX [Concomitant]
     Indication: OEDEMA
     Route: 048
     Dates: start: 20060523, end: 20061126
  3. MILTAX [Concomitant]
     Indication: OSTEOARTHRITIS
     Route: 062
     Dates: start: 20060523
  4. FESIN [Concomitant]
     Indication: IRON DEFICIENCY ANAEMIA
     Route: 042
     Dates: start: 20060523, end: 20061126
  5. NOVORAPID MIX (INSULIN ASPART(GENETICAL RECOMBINATION) [Concomitant]
     Indication: DIABETES MELLITUS
     Route: 058
     Dates: start: 20060523
  6. FERROMIA (SODIUM FERROUS CITRATE) [Concomitant]
     Indication: IRON DEFICIENCY ANAEMIA
     Route: 048
     Dates: start: 20060727, end: 20061126

REACTIONS (1)
  - DIABETIC NEPHROPATHY [None]
